FAERS Safety Report 17644568 (Version 1)
Quarter: 2020Q2

REPORT INFORMATION
  Report Type: Spontaneous
  Country: US (occurrence: US)
  Receive Date: 20200407
  Receipt Date: 20200407
  Transmission Date: 20200713
  Serious: No
  Sender: FDA-Public Use
  Company Number: None

PATIENT
  Age: 67 Year
  Sex: Male

DRUGS (1)
  1. OLANZAPINE (OLANZAPINE 5MG TAB (1/2 TAB)) [Suspect]
     Active Substance: OLANZAPINE
     Indication: COGNITIVE DISORDER
     Route: 048
     Dates: start: 20200219, end: 20200223

REACTIONS (2)
  - Catatonia [None]
  - Sedation [None]

NARRATIVE: CASE EVENT DATE: 20200311
